FAERS Safety Report 7460479-8 (Version None)
Quarter: 2011Q2

REPORT INFORMATION
  Report Type: 
  Country: None (occurrence: None)
  Receive Date: 20110505
  Receipt Date: 20110503
  Transmission Date: 20111010
  Serious: Yes (Other)
  Sender: FDA-Public Use
  Company Number: US-PFIZER INC-2011095471

PATIENT
  Sex: Female
  Weight: 82.993 kg

DRUGS (2)
  1. VALIUM [Concomitant]
     Dosage: UNK
  2. EFFEXOR XR [Suspect]
     Indication: DEPRESSION
     Dosage: 75 MG, DAILY
     Route: 048

REACTIONS (5)
  - BLOOD CHOLESTEROL INCREASED [None]
  - GLAUCOMA [None]
  - PARAESTHESIA [None]
  - DRUG INEFFECTIVE [None]
  - FORMICATION [None]
